FAERS Safety Report 6621031-7 (Version None)
Quarter: 2010Q1

REPORT INFORMATION
  Report Type: 
  Country: None (occurrence: None)
  Receive Date: 20100309
  Receipt Date: 20100303
  Transmission Date: 20100710
  Serious: Yes (Life-Threatening, Hospitalization, Congenital Anomaly)
  Sender: FDA-Public Use
  Company Number: A0624266A

PATIENT
  Sex: Male

DRUGS (2)
  1. PAXIL [Suspect]
     Indication: PANIC ATTACK
     Dates: start: 20010101, end: 20060101
  2. PAROXETINE HCL [Suspect]
     Indication: PANIC ATTACK
     Dates: start: 20010101, end: 20060101

REACTIONS (9)
  - DEVELOPMENTAL DELAY [None]
  - DRUG EXPOSURE DURING PREGNANCY [None]
  - DYSPEPSIA [None]
  - EATING DISORDER [None]
  - GASTROOESOPHAGEAL REFLUX DISEASE [None]
  - HYPOSPADIAS [None]
  - PERSISTENT FOETAL CIRCULATION [None]
  - PULMONARY ARTERY STENOSIS CONGENITAL [None]
  - RESPIRATORY DISTRESS [None]
